FAERS Safety Report 10081439 (Version 1)
Quarter: 2014Q2

REPORT INFORMATION
  Report Type: Spontaneous
  Country: GB (occurrence: GB)
  Receive Date: 20140416
  Receipt Date: 20140416
  Transmission Date: 20141212
  Serious: Yes (Hospitalization)
  Sender: FDA-Public Use
  Company Number: GB-PFIZER INC-2014105779

PATIENT
  Age: 82 Year
  Sex: Female

DRUGS (15)
  1. AMIODARONE HCL [Suspect]
     Indication: ATRIAL FIBRILLATION
     Dosage: 100 MG, DAILY
     Route: 048
     Dates: start: 20070910, end: 20140401
  2. ASPIRIN [Concomitant]
     Dosage: UNK
  3. BENDROFLUMETHIAZIDE [Concomitant]
     Dosage: UNK
  4. CITALOPRAM [Concomitant]
     Dosage: UNK
  5. CLENIL MODULITE [Concomitant]
     Dosage: UNK
  6. FOLIC ACID [Concomitant]
     Dosage: UNK
  7. HYPROMELLOSE [Concomitant]
     Dosage: UNK
  8. LEVOTHYROXINE SODIUM [Concomitant]
     Dosage: UNK
  9. LOSARTAN POTASSIUM [Concomitant]
     Dosage: UNK
  10. METHOTREXATE [Concomitant]
     Dosage: UNK
  11. MOMETASONE [Concomitant]
     Dosage: UNK
  12. OMEPRAZOLE [Concomitant]
     Dosage: UNK
  13. RAMIPRIL [Concomitant]
  14. SIMVASTATIN [Concomitant]
  15. VENTOLIN [Concomitant]

REACTIONS (2)
  - Retinopathy [Not Recovered/Not Resolved]
  - Visual impairment [Unknown]
